FAERS Safety Report 20471508 (Version 5)
Quarter: 2022Q4

REPORT INFORMATION
  Report Type: Spontaneous
  Country: US (occurrence: US)
  Receive Date: 20220214
  Receipt Date: 20221208
  Transmission Date: 20230113
  Serious: Yes (Other)
  Sender: FDA-Public Use
  Company Number: US-PFIZER INC-202200222853

PATIENT
  Age: 68 Year
  Sex: Female

DRUGS (3)
  1. XELJANZ XR [Suspect]
     Active Substance: TOFACITINIB CITRATE
     Indication: Rheumatoid arthritis
     Dosage: 11 MG, 1X/DAY
     Route: 048
     Dates: start: 20211227
  2. FOLIC ACID [Concomitant]
     Active Substance: FOLIC ACID
     Dosage: UNK
  3. METHOTREXATE [Concomitant]
     Active Substance: METHOTREXATE
     Dosage: UNK

REACTIONS (15)
  - Skin cancer [Unknown]
  - Rib fracture [Unknown]
  - Product dose omission issue [Unknown]
  - Product dose omission in error [Unknown]
  - Tremor [Unknown]
  - Illness [Not Recovered/Not Resolved]
  - Movement disorder [Unknown]
  - Discouragement [Unknown]
  - Nasopharyngitis [Not Recovered/Not Resolved]
  - Vomiting [Recovered/Resolved]
  - Influenza [Unknown]
  - Muscle rigidity [Unknown]
  - Condition aggravated [Unknown]
  - Erythema [Unknown]
  - Alopecia [Unknown]

NARRATIVE: CASE EVENT DATE: 20220101
